FAERS Safety Report 7876774-4 (Version None)
Quarter: 2011Q4

REPORT INFORMATION
  Report Type: 
  Country: None (occurrence: None)
  Receive Date: 20111031
  Receipt Date: 20111019
  Transmission Date: 20120403
  Serious: Yes (Other)
  Sender: FDA-Public Use
  Company Number: US-BAYER-201028810NA

PATIENT
  Age: 23 Year
  Sex: Female
  Weight: 91 kg

DRUGS (14)
  1. MOTRIN [Concomitant]
     Route: 048
  2. PROTONIX [Concomitant]
     Dosage: 40 MG, UNK
     Route: 048
     Dates: start: 20090911
  3. NAPROXEN [Concomitant]
     Route: 048
  4. YAZ [Suspect]
     Dosage: UNK
     Route: 048
     Dates: start: 20070101, end: 20100101
  5. YASMIN [Suspect]
     Dosage: UNK
     Dates: start: 20070101, end: 20100101
  6. ZITHROMAX [Concomitant]
     Indication: PHARYNGITIS
     Dosage: 250 MG, UNK
     Dates: start: 20090727
  7. IBUPROFEN [Concomitant]
     Route: 048
  8. DIFLUCAN [Concomitant]
     Dosage: 150 MG, UNK
     Dates: start: 20090727
  9. ALPRAZOLAM [Concomitant]
  10. NEXIUM [Concomitant]
     Dosage: UNK
     Dates: start: 20090912
  11. MEDROL [Concomitant]
     Dosage: 4 MG, UNK
     Route: 048
     Dates: start: 20090727
  12. NITROFUR-C [Concomitant]
     Dosage: UNK
     Dates: start: 20090912
  13. ONDANSETRON [Concomitant]
     Dosage: UNK
     Dates: start: 20090912
  14. OXYCODONE HCL AND ACETAMINOPHEN [Concomitant]
     Dosage: UNK
     Dates: start: 20090912

REACTIONS (3)
  - GALLBLADDER DISORDER [None]
  - CHOLECYSTITIS [None]
  - CHOLECYSTITIS ACUTE [None]
